FAERS Safety Report 10090167 (Version 2)
Quarter: 2014Q2

REPORT INFORMATION
  Report Type: Spontaneous
  Country: US (occurrence: US)
  Receive Date: 20140421
  Receipt Date: 20140421
  Transmission Date: 20141212
  Serious: Yes (Hospitalization)
  Sender: FDA-Public Use
  Company Number: US-GLAXOSMITHKLINE-A0877020A

PATIENT
  Sex: Male

DRUGS (1)
  1. AVANDIA [Suspect]
     Indication: TYPE 2 DIABETES MELLITUS
     Route: 048
     Dates: end: 200403

REACTIONS (5)
  - Cardiac failure congestive [Not Recovered/Not Resolved]
  - Cardiomyopathy [Unknown]
  - Ventricular tachycardia [Unknown]
  - Physical disability [Unknown]
  - Deformity [Unknown]
